FAERS Safety Report 16634019 (Version 6)
Quarter: 2019Q4

REPORT INFORMATION
  Report Type: Report from Study
  Country: None (occurrence: CA)
  Receive Date: 20190725
  Receipt Date: 20191105
  Transmission Date: 20200122
  Serious: Yes (Hospitalization, Other)
  Sender: FDA-Public Use
  Company Number: CA-ABBVIE-19K-028-2862024-00

PATIENT
  Age: 27 Year
  Sex: Female
  Weight: 86.71 kg

DRUGS (2)
  1. HUMIRA [Suspect]
     Active Substance: ADALIMUMAB
     Indication: CROHN^S DISEASE
     Route: 058
     Dates: start: 20140316, end: 201907
  2. HUMIRA [Suspect]
     Active Substance: ADALIMUMAB
     Route: 058
     Dates: start: 20190708, end: 2019

REACTIONS (16)
  - Therapeutic product effect incomplete [Not Recovered/Not Resolved]
  - Abdominal pain [Not Recovered/Not Resolved]
  - Defaecation disorder [Recovered/Resolved]
  - Nausea [Unknown]
  - Gastrointestinal stoma complication [Unknown]
  - Vomiting [Unknown]
  - Postoperative wound infection [Recovered/Resolved]
  - Impaired quality of life [Not Recovered/Not Resolved]
  - Colitis ulcerative [Recovered/Resolved]
  - Adhesion [Recovered/Resolved]
  - Small intestinal resection [Recovered/Resolved]
  - Vomiting [Recovered/Resolved]
  - Frequent bowel movements [Not Recovered/Not Resolved]
  - Ectopic pregnancy [Unknown]
  - Diarrhoea [Recovered/Resolved]
  - Pouchitis [Recovered/Resolved]

NARRATIVE: CASE EVENT DATE: 2019
